FAERS Safety Report 5964124-X (Version None)
Quarter: 2008Q4

REPORT INFORMATION
  Report Type: 
  Country: None (occurrence: None)
  Receive Date: 20081124
  Receipt Date: 20081118
  Transmission Date: 20090506
  Serious: No
  Sender: FDA-Public Use
  Company Number: US-B.I. PHARMACEUTICALS,INC./RIDGEFIELD-2008-BP-17465BP

PATIENT
  Sex: Male

DRUGS (9)
  1. SPIRIVA [Suspect]
     Indication: CHRONIC OBSTRUCTIVE PULMONARY DISEASE
     Dosage: 18MCG
     Route: 055
     Dates: start: 20071101
  2. ADVAIR HFA [Concomitant]
     Indication: CHRONIC OBSTRUCTIVE PULMONARY DISEASE
  3. SIMVASTATIN [Concomitant]
     Indication: BLOOD CHOLESTEROL INCREASED
  4. LISINOPRIL [Concomitant]
     Indication: HYPERTENSION
  5. LEXAPRO [Concomitant]
     Indication: DEPRESSION
  6. GABAPENTIN [Concomitant]
     Indication: PAIN IN EXTREMITY
  7. TRAMADOL HCL [Concomitant]
     Indication: PAIN IN EXTREMITY
  8. FUROSEMIDE [Concomitant]
     Indication: OEDEMA
  9. EYE VITES [Concomitant]
     Indication: MACULAR DEGENERATION

REACTIONS (1)
  - DYSPNOEA [None]
